FAERS Safety Report 6013969-9 (Version None)
Quarter: 2008Q4

REPORT INFORMATION
  Report Type: 
  Country: None (occurrence: None)
  Receive Date: 20081219
  Receipt Date: 20081209
  Transmission Date: 20090506
  Serious: Yes (Other)
  Sender: FDA-Public Use
  Company Number: JP-PFIZER INC-2008155557

PATIENT

DRUGS (1)
  1. GENOTROPIN [Suspect]
     Dosage: UNK
     Route: 058
     Dates: end: 20081115

REACTIONS (1)
  - HEPATITIS [None]
